FAERS Safety Report 18553080 (Version 1)
Quarter: 2020Q4

REPORT INFORMATION
  Report Type: Report from Study
  Country: BR (occurrence: BR)
  Receive Date: 20201127
  Receipt Date: 20201127
  Transmission Date: 20210114
  Serious: Yes (Death, Other)
  Sender: FDA-Public Use
  Company Number: BR-JNJFOC-20201137118

PATIENT
  Age: 21 Year
  Sex: Male
  Weight: 30 kg

DRUGS (1)
  1. INFLIXIMAB, RECOMBINANT [Suspect]
     Active Substance: INFLIXIMAB
     Indication: COLITIS ULCERATIVE
     Route: 042
     Dates: start: 20180626, end: 20200229

REACTIONS (2)
  - Gastrointestinal cancer metastatic [Unknown]
  - Disease complication [Fatal]
